FAERS Safety Report 22663539 (Version 2)
Quarter: 2024Q1

REPORT INFORMATION
  Report Type: Spontaneous
  Country: US (occurrence: US)
  Receive Date: 20230703
  Receipt Date: 20240103
  Transmission Date: 20240410
  Serious: Yes (Other)
  Sender: FDA-Public Use
  Company Number: US-NOVOPROD-1084504

PATIENT
  Age: 59 Year
  Sex: Male

DRUGS (1)
  1. OZEMPIC [Suspect]
     Active Substance: SEMAGLUTIDE
     Indication: Product used for unknown indication
     Dosage: 0.25 MG, QW
     Route: 058
     Dates: start: 20230616

REACTIONS (7)
  - Syncope [Recovered/Resolved]
  - Hypoacusis [Recovering/Resolving]
  - Vision blurred [Recovering/Resolving]
  - Sinus disorder [Unknown]
  - Hypopnoea [Not Recovered/Not Resolved]
  - Blood pressure fluctuation [Unknown]
  - Dizziness [Not Recovered/Not Resolved]

NARRATIVE: CASE EVENT DATE: 20230101
